FAERS Safety Report 22019472 (Version 1)
Quarter: 2023Q1

REPORT INFORMATION
  Report Type: Spontaneous
  Country: US (occurrence: US)
  Receive Date: 20230222
  Receipt Date: 20230222
  Transmission Date: 20230418
  Serious: No
  Sender: FDA-Public Use
  Company Number: US-TEVA-2023-US-2853385

PATIENT
  Sex: Female

DRUGS (2)
  1. AJOVY [Suspect]
     Active Substance: FREMANEZUMAB-VFRM
     Indication: Headache
     Dosage: 225/1.5 MG/ML
     Route: 065
     Dates: start: 2022
  2. AJOVY [Suspect]
     Active Substance: FREMANEZUMAB-VFRM

REACTIONS (6)
  - Dyspnoea [Not Recovered/Not Resolved]
  - Chest pain [Unknown]
  - Myalgia [Unknown]
  - Muscle spasms [Unknown]
  - Atelectasis [Unknown]
  - Pleurisy [Unknown]

NARRATIVE: CASE EVENT DATE: 20230101
